FAERS Safety Report 17600550 (Version 2)
Quarter: 2020Q2

REPORT INFORMATION
  Report Type: Spontaneous
  Country: ES (occurrence: ES)
  Receive Date: 20200330
  Receipt Date: 20200402
  Transmission Date: 20200713
  Serious: Yes (Life-Threatening)
  Sender: FDA-Public Use
  Company Number: ES-ABBVIE-20K-144-3343435-00

PATIENT
  Age: 51 Year
  Sex: Male
  Weight: 84 kg

DRUGS (6)
  1. PROPYLENE GLYCOL [Suspect]
     Active Substance: PROPYLENE GLYCOL
     Indication: PRODUCT USED FOR UNKNOWN INDICATION
     Route: 048
     Dates: start: 20200310, end: 20200316
  2. CLOROQUINA FOSFATO [Concomitant]
     Indication: CORONAVIRUS INFECTION
     Route: 048
     Dates: start: 20200310
  3. LEVOFLOXACINO [Concomitant]
     Active Substance: LEVOFLOXACIN
     Indication: PRODUCT USED FOR UNKNOWN INDICATION
     Route: 048
     Dates: start: 20200309
  4. KALETRA [Suspect]
     Active Substance: LOPINAVIR\RITONAVIR
     Indication: CORONAVIRUS INFECTION
     Route: 048
     Dates: start: 20200310, end: 20200316
  5. CEFTRIAXONA [Concomitant]
     Active Substance: CEFTRIAXONE
     Indication: PRODUCT USED FOR UNKNOWN INDICATION
     Route: 042
     Dates: start: 20200309
  6. AMOXICILINA + ACIDO CLAVULAICO [Concomitant]
     Indication: PRODUCT USED FOR UNKNOWN INDICATION
     Route: 042
     Dates: start: 20200308

REACTIONS (2)
  - Acute kidney injury [Not Recovered/Not Resolved]
  - Reaction to excipient [Not Recovered/Not Resolved]

NARRATIVE: CASE EVENT DATE: 20200312
